FAERS Safety Report 6492879-7 (Version None)
Quarter: 2009Q4

REPORT INFORMATION
  Report Type: 
  Country: None (occurrence: None)
  Receive Date: 20091214
  Receipt Date: 20091201
  Transmission Date: 20100525
  Serious: Yes (Other)
  Sender: FDA-Public Use
  Company Number: PHEH2009US17177

PATIENT
  Age: 61 Year
  Sex: Male

DRUGS (6)
  1. TASIGNA [Suspect]
     Indication: CHRONIC MYELOID LEUKAEMIA
     Dosage: 200 NG, BID
     Route: 048
     Dates: start: 20091015
  2. GLEEVEC [Suspect]
     Indication: CHRONIC MYELOID LEUKAEMIA
  3. LIPITOR [Concomitant]
     Dosage: UNK, UNK
     Route: 065
  4. LISINOPRIL [Concomitant]
     Dosage: UNK, UNK
     Route: 065
  5. MAGNESIUM [Concomitant]
     Dosage: UNK, UNK
     Route: 065
  6. TOPROL-XL [Concomitant]
     Dosage: UNK, UNK
     Route: 065

REACTIONS (4)
  - ARTHRALGIA [None]
  - HALLUCINATION [None]
  - HEADACHE [None]
  - WEIGHT DECREASED [None]
